FAERS Safety Report 8206290-1 (Version None)
Quarter: 2012Q1

REPORT INFORMATION
  Report Type: 
  Country: None (occurrence: None)
  Receive Date: 20120313
  Receipt Date: 20120301
  Transmission Date: 20120608
  Serious: Yes (Hospitalization, Other)
  Sender: FDA-Public Use
  Company Number: PHHY2012FR011689

PATIENT
  Sex: Male
  Weight: 131.5 kg

DRUGS (4)
  1. LEVOTHYROXINE SODIUM [Concomitant]
     Dosage: 1 DF, DAILY
     Route: 048
  2. BISOPROLOL FUMARATE [Concomitant]
     Dosage: 10 MG, QD
  3. MOXONIDINE [Concomitant]
     Dosage: 1 DF, DAILY
     Route: 048
  4. RASILEZ HCT [Suspect]
     Indication: HYPERTENSION
     Dosage: 1 DF, QD

REACTIONS (12)
  - BLOOD CREATININE INCREASED [None]
  - FATIGUE [None]
  - ARTHRALGIA [None]
  - HYPERURICAEMIA [None]
  - OLIGURIA [None]
  - MUSCLE SPASMS [None]
  - CREATININE RENAL CLEARANCE [None]
  - GAIT DISTURBANCE [None]
  - ASTHENIA [None]
  - GOUT [None]
  - RENAL IMPAIRMENT [None]
  - WEIGHT DECREASED [None]
